FAERS Safety Report 5758639-7 (Version None)
Quarter: 2008Q2

REPORT INFORMATION
  Report Type: 
  Country: None (occurrence: None)
  Receive Date: 20080507
  Receipt Date: 20070807
  Transmission Date: 20081010
  Serious: Yes (Hospitalization)
  Sender: FDA-Public Use
  Company Number: 236543K07USA

PATIENT
  Age: 36 Year
  Sex: Male
  Weight: 126.5536 kg

DRUGS (7)
  1. REBIF [Suspect]
     Indication: MULTIPLE SCLEROSIS
     Dosage: 44 MCG, 3 IN 1 WEEKS, SUBCUTANEOUS
     Route: 058
     Dates: start: 20070424
  2. PROTONIX [Concomitant]
  3. TRAMADOL HCL [Concomitant]
  4. NEURONTIN [Concomitant]
  5. PERCOCET [Concomitant]
  6. STEROIDS (CORTICOSTEROID NOS) [Concomitant]
  7. CALCIUM (CALCIUM /00751501/) [Concomitant]

REACTIONS (6)
  - FALL [None]
  - HEART RATE DECREASED [None]
  - HYPOTENSION [None]
  - INJECTION SITE PAIN [None]
  - MOBILITY DECREASED [None]
  - MULTIPLE SCLEROSIS RELAPSE [None]
